FAERS Safety Report 8186432-7 (Version None)
Quarter: 2012Q1

REPORT INFORMATION
  Report Type: 
  Country: None (occurrence: None)
  Receive Date: 20120305
  Receipt Date: 20120305
  Transmission Date: 20120608
  Serious: Yes (Life-Threatening, Hospitalization)
  Sender: FDA-Public Use
  Company Number: None

PATIENT
  Sex: Male
  Weight: 109 kg

DRUGS (1)
  1. CHANTIX [Suspect]
     Indication: SMOKING CESSATION THERAPY
     Dosage: ORAL 2-3 WEEKS
     Route: 048

REACTIONS (6)
  - SUICIDE ATTEMPT [None]
  - VOMITING [None]
  - CRYING [None]
  - NO THERAPEUTIC RESPONSE [None]
  - UNRESPONSIVE TO STIMULI [None]
  - MULTIPLE DRUG OVERDOSE INTENTIONAL [None]
